FAERS Safety Report 5367307-5 (Version None)
Quarter: 2007Q2

REPORT INFORMATION
  Report Type: 
  Country: None (occurrence: None)
  Receive Date: 20070622
  Receipt Date: 20060525
  Transmission Date: 20071010
  Serious: No
  Sender: FDA-Public Use
  Company Number: US-ASTRAZENECA-2006UW10271

PATIENT
  Age: 83 Year
  Sex: Female
  Weight: 54.4 kg

DRUGS (10)
  1. PULMICORT RESPULES [Suspect]
     Indication: PULMONARY CONGESTION
     Dosage: 0.5 MG/2 ML
     Route: 055
  2. PULMICORT RESPULES [Suspect]
     Indication: DYSPHONIA
     Dosage: 0.5 MG/2 ML
     Route: 055
  3. PULMICORT RESPULES [Suspect]
     Indication: COUGH
     Dosage: 0.5 MG/2 ML
     Route: 055
  4. PULMICORT RESPULES [Suspect]
     Dosage: 0.5 MG/2 ML  HS
     Route: 055
     Dates: start: 20060401
  5. PULMICORT RESPULES [Suspect]
     Dosage: 0.5 MG/2 ML  HS
     Route: 055
     Dates: start: 20060401
  6. PULMICORT RESPULES [Suspect]
     Dosage: 0.5 MG/2 ML  HS
     Route: 055
     Dates: start: 20060401
  7. IPRATROPIUM BROMIDE [Suspect]
  8. SOTALOL HYDROCHLORIDE [Concomitant]
  9. MOBID [Concomitant]
  10. TAMOXIFEN CITRATE [Concomitant]

REACTIONS (4)
  - CONSTIPATION [None]
  - HEART RATE INCREASED [None]
  - INFLUENZA [None]
  - MEDICATION ERROR [None]
